FAERS Safety Report 8156449 (Version 2)
Quarter: 2013Q3

REPORT INFORMATION
  Report Type: Spontaneous
  Country: US (occurrence: US)
  Receive Date: 20110926
  Receipt Date: 20130904
  Transmission Date: 20140515
  Serious: Yes (Hospitalization)
  Sender: FDA-Public Use
  Company Number: US-GLAXOSMITHKLINE-A0915650A

PATIENT
  Age: 66 Year
  Sex: Male

DRUGS (1)
  1. AVANDIA [Suspect]
     Indication: DIABETES MELLITUS
     Dosage: 8MG PER DAY
     Route: 048
     Dates: start: 2002, end: 201001

REACTIONS (6)
  - Cardiac failure congestive [Not Recovered/Not Resolved]
  - Renal failure acute [Unknown]
  - Atrial fibrillation [Unknown]
  - Bradycardia [Unknown]
  - Cardiac disorder [Unknown]
  - Cardiovascular disorder [Unknown]
